FAERS Safety Report 20999575 (Version 2)
Quarter: 2022Q3

REPORT INFORMATION
  Report Type: Spontaneous
  Country: US (occurrence: US)
  Receive Date: 20220623
  Receipt Date: 20220802
  Transmission Date: 20221026
  Serious: Yes (Hospitalization, Other)
  Sender: FDA-Public Use
  Company Number: US-DSJP-DSU-2022-121659

PATIENT
  Age: 62 Year
  Sex: Female
  Weight: 124 kg

DRUGS (2)
  1. ENHERTU [Suspect]
     Active Substance: FAM-TRASTUZUMAB DERUXTECAN-NXKI
     Indication: Breast cancer
     Dosage: UNK UNK 3 CYCLES
     Route: 065
  2. ENHERTU [Suspect]
     Active Substance: FAM-TRASTUZUMAB DERUXTECAN-NXKI
     Dosage: UNK, ONCE EVERY 3 WK
     Route: 065
     Dates: start: 20220412, end: 20220624

REACTIONS (6)
  - Hypoxia [Unknown]
  - Acute respiratory failure [Unknown]
  - Pneumonitis [Unknown]
  - Respiratory failure [Unknown]
  - Interstitial lung disease [Unknown]
  - Disease progression [Unknown]

NARRATIVE: CASE EVENT DATE: 20220526
